FAERS Safety Report 8860787 (Version 9)
Quarter: 2013Q1

REPORT INFORMATION
  Report Type: Spontaneous
  Country: US (occurrence: US)
  Receive Date: 20121026
  Receipt Date: 20130318
  Transmission Date: 20140127
  Serious: Yes (Hospitalization)
  Sender: FDA-Public Use
  Company Number: US-BIOGENIDEC-2012BI044779

PATIENT
  Age: 35 Year
  Sex: Female

DRUGS (12)
  1. TYSABRI [Suspect]
     Indication: MULTIPLE SCLEROSIS
     Route: 042
     Dates: start: 20061108, end: 20120409
  2. GILENYA [Concomitant]
     Dates: start: 20120711
  3. FOLIC ACID [Concomitant]
     Route: 048
  4. KLOR-CON [Concomitant]
     Route: 048
  5. VITAMIN D3 [Concomitant]
     Route: 048
  6. AMBIEN [Concomitant]
     Route: 048
  7. ZANAFLEX [Concomitant]
     Route: 048
  8. VALTREX [Concomitant]
     Route: 048
  9. VYVANSE [Concomitant]
     Route: 048
  10. COGENTIN [Concomitant]
  11. ALPRAZOLAM [Concomitant]
     Route: 048
  12. ADDERALL [Concomitant]
     Route: 048

REACTIONS (4)
  - Multiple sclerosis relapse [Unknown]
  - Immune reconstitution inflammatory syndrome [Unknown]
  - Optic neuritis [Unknown]
  - Depression [Not Recovered/Not Resolved]
